FAERS Safety Report 15902242 (Version 2)
Quarter: 2019Q1

REPORT INFORMATION
  Report Type: Report from Study
  Country: US (occurrence: US)
  Receive Date: 20190201
  Receipt Date: 20190212
  Transmission Date: 20190417
  Serious: Yes (Hospitalization, Other)
  Sender: FDA-Public Use
  Company Number: PHHY2018US156329

PATIENT
  Age: 81 Year
  Sex: Female
  Weight: 70.4 kg

DRUGS (5)
  1. AFINITOR [Suspect]
     Active Substance: EVEROLIMUS
     Indication: METASTATIC NEOPLASM
     Dosage: 10 MG, UNK
     Route: 048
     Dates: start: 201609, end: 201811
  2. LANREOTIDE [Suspect]
     Active Substance: LANREOTIDE
     Indication: CARCINOID SYNDROME
  3. LANREOTIDE [Suspect]
     Active Substance: LANREOTIDE
     Indication: METASTATIC NEOPLASM
     Dosage: 120 MG, UNK
     Route: 030
     Dates: start: 201607, end: 201811
  4. AFINITOR [Suspect]
     Active Substance: EVEROLIMUS
     Indication: CARCINOID SYNDROME
  5. AIMOVIG [Suspect]
     Active Substance: ERENUMAB-AOOE
     Indication: PRODUCT USED FOR UNKNOWN INDICATION
     Dosage: UNK
     Route: 065
     Dates: start: 2018

REACTIONS (1)
  - Cardiac failure congestive [Recovering/Resolving]

NARRATIVE: CASE EVENT DATE: 20181103
